FAERS Safety Report 5475115-X (Version None)
Quarter: 2007Q4

REPORT INFORMATION
  Report Type: 
  Country: None (occurrence: None)
  Receive Date: 20071002
  Receipt Date: 20070927
  Transmission Date: 20080405
  Serious: Yes (Hospitalization)
  Sender: FDA-Public Use
  Company Number: AU-BOEHRINGER INGELHEIM PHARMACEUTICALS, INC.-2007-BP-21836AU

PATIENT
  Sex: Male

DRUGS (2)
  1. VIRAMUNE [Suspect]
     Route: 048
  2. REYATAZ [Suspect]
     Route: 048

REACTIONS (3)
  - HEPATIC ENZYME INCREASED [None]
  - PIGMENTATION DISORDER [None]
  - RASH [None]
